FAERS Safety Report 9753782 (Version 2)
Quarter: 2015Q3

REPORT INFORMATION
  Report Type: Spontaneous
  Country: US (occurrence: US)
  Receive Date: 20131213
  Receipt Date: 20150805
  Transmission Date: 20151125
  Serious: No
  Sender: FDA-Public Use
  Company Number: US-GILEAD-2010-0027009

PATIENT
  Age: 48 Year
  Sex: Female
  Weight: 49.89 kg

DRUGS (15)
  1. LETAIRIS [Suspect]
     Active Substance: AMBRISENTAN
     Indication: PULMONARY ARTERIAL HYPERTENSION
     Route: 048
     Dates: start: 20090902
  2. DIGOXIN. [Concomitant]
     Active Substance: DIGOXIN
  3. BENZONATATE. [Concomitant]
     Active Substance: BENZONATATE
  4. REVATIO [Concomitant]
     Active Substance: SILDENAFIL CITRATE
  5. ALDACTONE [Concomitant]
     Active Substance: SPIRONOLACTONE
  6. QVAR [Concomitant]
     Active Substance: BECLOMETHASONE DIPROPIONATE
  7. PULMICORT TURBUHALER [Concomitant]
     Active Substance: BUDESONIDE
  8. SINGULAIR [Concomitant]
     Active Substance: MONTELUKAST SODIUM
  9. FUROSEMIDE. [Concomitant]
     Active Substance: FUROSEMIDE
  10. ATROVENT [Concomitant]
     Active Substance: IPRATROPIUM BROMIDE
  11. XANAX [Concomitant]
     Active Substance: ALPRAZOLAM
  12. FORADIL [Concomitant]
     Active Substance: FORMOTEROL FUMARATE
  13. AZITHROMYCIN [Concomitant]
     Active Substance: AZITHROMYCIN ANHYDROUS
  14. TARCEVA [Concomitant]
     Active Substance: ERLOTINIB HYDROCHLORIDE
  15. VFEND [Concomitant]
     Active Substance: VORICONAZOLE

REACTIONS (1)
  - Myalgia [Unknown]
